FAERS Safety Report 9059747 (Version 1)
Quarter: 2013Q1

REPORT INFORMATION
  Report Type: Spontaneous
  Country: US (occurrence: None)
  Receive Date: 20130206
  Receipt Date: 20130206
  Transmission Date: 20140127
  Serious: Yes (Hospitalization, Other)
  Sender: FDA-Public Use
  Company Number: None

PATIENT
  Age: 26 Year
  Sex: Female
  Weight: 72.58 kg

DRUGS (2)
  1. SAFYRAL [Suspect]
     Indication: THROMBOSIS
     Dosage: 1 PILL, ONCE A DAY, PO
     Route: 048
     Dates: start: 20110701, end: 20120720
  2. SAFYRAL [Suspect]
     Indication: HAEMORRHAGE
     Dosage: 1 PILL, ONCE A DAY, PO
     Route: 048
     Dates: start: 20110701, end: 20120720

REACTIONS (10)
  - Abdominal distension [None]
  - Weight increased [None]
  - Constipation [None]
  - Anxiety [None]
  - Headache [None]
  - Fatigue [None]
  - Night sweats [None]
  - Vision blurred [None]
  - Alopecia [None]
  - Uterine leiomyoma [None]
